FAERS Safety Report 20450602 (Version 1)
Quarter: 2022Q1

REPORT INFORMATION
  Report Type: Spontaneous
  Country: US (occurrence: None)
  Receive Date: 20220209
  Receipt Date: 20220209
  Transmission Date: 20220423
  Serious: Yes (Other)
  Sender: FDA-Public Use
  Company Number: None

PATIENT
  Age: 40 Year
  Sex: Female

DRUGS (1)
  1. SPRAVATO [Suspect]
     Active Substance: ESKETAMINE
     Indication: Major depression
     Dosage: FREQUENCY : WEEKLY;?
     Route: 045
     Dates: start: 20200813

REACTIONS (2)
  - Generalised tonic-clonic seizure [None]
  - Stress [None]

NARRATIVE: CASE EVENT DATE: 20220207
